FAERS Safety Report 21392005 (Version 2)
Quarter: 2022Q4

REPORT INFORMATION
  Report Type: Report from Study
  Country: FR (occurrence: FR)
  Receive Date: 20220929
  Receipt Date: 20221013
  Transmission Date: 20230112
  Serious: Yes (Other)
  Sender: FDA-Public Use
  Company Number: FR-NOVARTISPH-NVSC2022FR217682

PATIENT
  Sex: Male

DRUGS (1)
  1. PLUVICTO [Suspect]
     Active Substance: LUTETIUM LU-177 VIPIVOTIDE TETRAXETAN
     Indication: Prostate cancer
     Dosage: 7167 MBQ, ONCE/SINGLE
     Route: 065
     Dates: start: 20220811, end: 20220811

REACTIONS (3)
  - Haematotoxicity [Unknown]
  - Thrombocytopenia [Unknown]
  - Anaemia [Unknown]
